FAERS Safety Report 21082173 (Version 1)
Quarter: 2022Q3

REPORT INFORMATION
  Report Type: Spontaneous
  Country: US (occurrence: None)
  Receive Date: 20220714
  Receipt Date: 20220714
  Transmission Date: 20221027
  Serious: No
  Sender: FDA-Public Use
  Company Number: None

PATIENT
  Age: 57 Year
  Sex: Female
  Weight: 72 kg

DRUGS (5)
  1. PAXLOVID [Suspect]
     Active Substance: NIRMATRELVIR\RITONAVIR
     Indication: COVID-19 treatment
     Dosage: FREQUENCY : TWICE A DAY;?
     Route: 048
     Dates: start: 20220705, end: 20220710
  2. PRADAXA [Concomitant]
     Active Substance: DABIGATRAN ETEXILATE MESYLATE
  3. METOPROLOL [Concomitant]
     Active Substance: METOPROLOL
  4. MAXALT [Concomitant]
     Active Substance: RIZATRIPTAN BENZOATE
  5. Multi-vitamins [Concomitant]

REACTIONS (9)
  - Dysgeusia [None]
  - Retching [None]
  - Sinus congestion [None]
  - Nasal congestion [None]
  - Secretion discharge [None]
  - Swelling [None]
  - Pain [None]
  - Dysgeusia [None]
  - COVID-19 [None]

NARRATIVE: CASE EVENT DATE: 20220713
